FAERS Safety Report 5453984-7 (Version None)
Quarter: 2007Q3

REPORT INFORMATION
  Report Type: 
  Country: None (occurrence: None)
  Receive Date: 20070917
  Receipt Date: 20070228
  Transmission Date: 20080115
  Serious: Yes (Other)
  Sender: FDA-Public Use
  Company Number: US-ASTRAZENECA-2006UW03024

PATIENT
  Age: 30 Year
  Sex: Female
  Weight: 61.4 kg

DRUGS (2)
  1. SEROQUEL [Suspect]
     Indication: SLEEP TERROR
     Route: 048
     Dates: start: 20010101, end: 20010201
  2. ZYPREXA [Concomitant]
     Dates: start: 20010101, end: 20020101

REACTIONS (6)
  - ABDOMINAL DISTENSION [None]
  - DIABETES MELLITUS [None]
  - NAUSEA [None]
  - PAIN [None]
  - PANCREATITIS [None]
  - WEIGHT INCREASED [None]
